FAERS Safety Report 7466353-5 (Version None)
Quarter: 2011Q2

REPORT INFORMATION
  Report Type: 
  Country: None (occurrence: None)
  Receive Date: 20110509
  Receipt Date: 20100723
  Transmission Date: 20111010
  Serious: No
  Sender: FDA-Public Use
  Company Number: US-ALEXION-A201000874

PATIENT
  Sex: Female

DRUGS (6)
  1. SOLIRIS [Suspect]
     Dosage: 600 MG, SINGLE
     Route: 042
     Dates: start: 20100813, end: 20100813
  2. FOLIC ACID [Concomitant]
     Dosage: 1 MG, QD
  3. MULTI-VITAMINS [Concomitant]
     Dosage: UNK
  4. SOLIRIS [Suspect]
     Indication: PAROXYSMAL NOCTURNAL HAEMOGLOBINURIA
     Dosage: 600 MG, QW
     Route: 042
     Dates: start: 20100716, end: 20100730
  5. SOLIRIS [Suspect]
     Dosage: 900 MG, Q2W
     Route: 042
     Dates: start: 20100820
  6. IRON [Concomitant]
     Dosage: 325 MG, BID

REACTIONS (2)
  - HEADACHE [None]
  - FATIGUE [None]
